FAERS Safety Report 11368886 (Version 1)
Quarter: 2015Q3

REPORT INFORMATION
  Report Type: Spontaneous
  Country: IT (occurrence: IT)
  Receive Date: 20150812
  Receipt Date: 20150812
  Transmission Date: 20151125
  Serious: Yes (Hospitalization)
  Sender: FDA-Public Use
  Company Number: IT-TEVA-584249ACC

PATIENT
  Age: 40 Year
  Sex: Male

DRUGS (4)
  1. CITARABINA HOSPIRA - 2 G/20 ML SOLUZIONE INIETTABILE - HOSPIRA ITALIA [Suspect]
     Active Substance: CYTARABINE
     Indication: NON-HODGKIN^S LYMPHOMA
     Dosage: 12 G TOTAL
     Route: 042
     Dates: start: 20150522, end: 20150523
  2. MABTHERA [Suspect]
     Active Substance: RITUXIMAB
     Indication: NON-HODGKIN^S LYMPHOMA
     Dosage: 700 MG TOTAL
     Route: 042
     Dates: start: 20150520, end: 20150520
  3. METOTRESSATO TEVA - 100 MG/ML SOLUZIONE INIETTABILE - TEVA ITALIA S.R. [Suspect]
     Active Substance: METHOTREXATE SODIUM
     Indication: NON-HODGKIN^S LYMPHOMA
     Dosage: 7 G TOTAL
     Route: 042
     Dates: start: 20150521, end: 20150521
  4. TEPADINA [Suspect]
     Active Substance: THIOTEPA
     Indication: NON-HODGKIN^S LYMPHOMA
     Dosage: 60 MG TOTAL; POWDER FOR CONCENTRATE FOR SOLUTION FOR INFUSION
     Route: 042
     Dates: start: 20150524, end: 20150524

REACTIONS (4)
  - Febrile neutropenia [Unknown]
  - Enterococcal infection [Recovered/Resolved]
  - Anaemia [Recovered/Resolved]
  - Thrombocytopenia [Recovered/Resolved]

NARRATIVE: CASE EVENT DATE: 20150602
